FAERS Safety Report 9264070 (Version 1)
Quarter: 2013Q2

REPORT INFORMATION
  Report Type: Spontaneous
  Country: FR (occurrence: FR)
  Receive Date: 20130430
  Receipt Date: 20130430
  Transmission Date: 20140414
  Serious: Yes (Death, Hospitalization)
  Sender: FDA-Public Use
  Company Number: FR-ABBOTT-13P-056-1081716-00

PATIENT
  Age: 54 Year
  Sex: Female

DRUGS (11)
  1. NORVIR [Suspect]
     Indication: HIV INFECTION
     Route: 048
     Dates: start: 20100527, end: 20100608
  2. TRUVADA [Suspect]
     Indication: HIV INFECTION
     Dosage: 200/245 MG
     Route: 048
     Dates: start: 20100527
  3. REYATAZ [Suspect]
     Indication: HIV INFECTION
     Route: 048
     Dates: start: 20100527, end: 20100608
  4. ISENTRESS [Suspect]
     Indication: HIV INFECTION
     Dates: start: 20100608
  5. GLUCOPHAGE [Suspect]
     Indication: DIABETES MELLITUS
     Route: 048
  6. HUMALOG [Concomitant]
     Indication: PRODUCT USED FOR UNKNOWN INDICATION
  7. EUPRESSYL [Concomitant]
     Indication: PRODUCT USED FOR UNKNOWN INDICATION
  8. IPERTEN [Concomitant]
     Indication: PRODUCT USED FOR UNKNOWN INDICATION
  9. VASTAREL [Concomitant]
     Indication: PRODUCT USED FOR UNKNOWN INDICATION
  10. SEROPLEX [Concomitant]
     Indication: PRODUCT USED FOR UNKNOWN INDICATION
  11. NISISCO [Concomitant]
     Indication: PRODUCT USED FOR UNKNOWN INDICATION

REACTIONS (18)
  - Renal failure acute [Fatal]
  - Somnolence [Unknown]
  - Speech disorder [Unknown]
  - Balance disorder [Unknown]
  - Malaise [Unknown]
  - Respiratory distress [Unknown]
  - Pulmonary embolism [Unknown]
  - Coma [Unknown]
  - Cardio-respiratory arrest [Unknown]
  - Blood potassium increased [Unknown]
  - Vomiting [Unknown]
  - Drug tolerance decreased [Unknown]
  - Asthenia [Unknown]
  - Decreased appetite [Unknown]
  - Unevaluable event [Unknown]
  - Depressed mood [Unknown]
  - Psychomotor skills impaired [Unknown]
  - Conjunctival discolouration [Unknown]
